FAERS Safety Report 4480553-8 (Version None)
Quarter: 2004Q4

REPORT INFORMATION
  Report Type: 
  Country: None (occurrence: None)
  Receive Date: 20041019
  Receipt Date: 20041005
  Transmission Date: 20050328
  Serious: Yes (Disabling)
  Sender: FDA-Public Use
  Company Number: 2004SE05275

PATIENT
  Sex: Male

DRUGS (1)
  1. MARCAINE [Suspect]
     Indication: LOCAL ANAESTHESIA

REACTIONS (6)
  - ANAESTHETIC COMPLICATION [None]
  - DIABETES MELLITUS [None]
  - INJECTION SITE PAIN [None]
  - INTERVERTEBRAL DISC DEGENERATION [None]
  - PAIN [None]
  - PARAESTHESIA [None]
